FAERS Safety Report 4400756-8 (Version None)
Quarter: 2004Q3

REPORT INFORMATION
  Report Type: 
  Country: None (occurrence: None)
  Receive Date: 20040714
  Receipt Date: 20040706
  Transmission Date: 20050211
  Serious: Yes (Disabling)
  Sender: FDA-Public Use
  Company Number: 207643

PATIENT
  Age: 69 Year
  Sex: Female
  Weight: 91.2 kg

DRUGS (10)
  1. XOLAIR [Suspect]
     Indication: ASTHMA
     Dosage: 300 MG, Q2W, SUBCUTANEOUS
     Route: 058
     Dates: start: 20040621, end: 20040621
  2. ADVAIR DISKUS [Concomitant]
  3. FLOVENT [Concomitant]
  4. ORAL STEROID (ORAL STEROID) [Concomitant]
  5. SINGULAIR [Concomitant]
  6. PREVACID [Concomitant]
  7. POTASSIUM (POTASSIUM NOS) [Concomitant]
  8. ZOCOR [Concomitant]
  9. DIGOXIN [Concomitant]
  10. PLAVIX [Concomitant]

REACTIONS (2)
  - BLINDNESS UNILATERAL [None]
  - OPTIC NEURITIS [None]
